FAERS Safety Report 17021206 (Version 1)
Quarter: 2019Q4

REPORT INFORMATION
  Report Type: Spontaneous
  Country: FR (occurrence: FR)
  Receive Date: 20191112
  Receipt Date: 20191112
  Transmission Date: 20200122
  Serious: Yes (Hospitalization)
  Sender: FDA-Public Use
  Company Number: FR-MYLANLABS-2019M1106914

PATIENT
  Age: 63 Year
  Sex: Female
  Weight: 66 kg

DRUGS (3)
  1. OXALIPLATIN. [Suspect]
     Active Substance: OXALIPLATIN
     Indication: BRONCHIAL CARCINOMA
     Dosage: 145 MILLIGRAM
     Route: 042
     Dates: start: 20190318, end: 20190318
  2. FLUOROURACIL. [Suspect]
     Active Substance: FLUOROURACIL
     Indication: BRONCHIAL CARCINOMA
     Dosage: 700 MG EN BOLUS, PUIS 4100 MG EN INFUSION
     Route: 040
     Dates: start: 20190318, end: 20190318
  3. FOLINATE DE CALCIUM [Suspect]
     Active Substance: LEUCOVORIN CALCIUM
     Indication: BRONCHIAL CARCINOMA
     Dosage: 350 MILLIGRAM
     Route: 042
     Dates: start: 20190318, end: 20190318

REACTIONS (4)
  - Paraesthesia [Recovered/Resolved]
  - Paraesthesia oral [Recovered/Resolved]
  - Dyspnoea [Recovered/Resolved]
  - Bronchospasm [Recovered/Resolved]

NARRATIVE: CASE EVENT DATE: 20190319
